FAERS Safety Report 6401390-0 (Version None)
Quarter: 2009Q4

REPORT INFORMATION
  Report Type: 
  Country: None (occurrence: None)
  Receive Date: 20091015
  Receipt Date: 20091001
  Transmission Date: 20100525
  Serious: Yes (Other)
  Sender: FDA-Public Use
  Company Number: PHEH2009US12852

PATIENT
  Sex: Female

DRUGS (1)
  1. EXJADE [Suspect]
     Dosage: 1000 MG DAILY
     Route: 048
     Dates: start: 20070323, end: 20090922

REACTIONS (3)
  - CHROMATURIA [None]
  - CONJUNCTIVAL DISCOLOURATION [None]
  - JAUNDICE [None]
